FAERS Safety Report 6349235-1 (Version None)
Quarter: 2009Q3

REPORT INFORMATION
  Report Type: 
  Country: None (occurrence: None)
  Receive Date: 20090911
  Receipt Date: 20090902
  Transmission Date: 20100115
  Serious: Yes (Congenital Anomaly)
  Sender: FDA-Public Use
  Company Number: A0681293A

PATIENT
  Sex: Female

DRUGS (4)
  1. PAXIL [Suspect]
     Indication: DEPRESSION
     Dosage: 30MG PER DAY
     Dates: start: 19990701, end: 20060101
  2. VITAMIN TAB [Concomitant]
  3. AMOXICILLIN [Concomitant]
     Dates: start: 20000224
  4. AUGMENTIN [Concomitant]
     Dosage: 875MG TWICE PER DAY
     Dates: start: 20000229

REACTIONS (3)
  - CARDIAC MURMUR [None]
  - CONGENITAL ANOMALY [None]
  - DRUG EXPOSURE DURING PREGNANCY [None]
